FAERS Safety Report 10932910 (Version 2)
Quarter: 2015Q1

REPORT INFORMATION
  Report Type: Report from Study
  Country: DE (occurrence: DE)
  Receive Date: 20150320
  Receipt Date: 20150323
  Transmission Date: 20150721
  Serious: Yes (Hospitalization, Other)
  Sender: FDA-Public Use
  Company Number: DE-ABBVIE-10P-062-0687839-00

PATIENT
  Age: 46 Year
  Sex: Female
  Weight: 91 kg

DRUGS (13)
  1. RENAGEL [Concomitant]
     Active Substance: SEVELAMER HYDROCHLORIDE
     Indication: PRODUCT USED FOR UNKNOWN INDICATION
     Dosage: ONCE PER DAY
     Route: 048
     Dates: start: 20100303
  2. MIMPARA [Concomitant]
     Active Substance: CINACALCET HYDROCHLORIDE
     Indication: PRODUCT USED FOR UNKNOWN INDICATION
     Dosage: ONCE PER DAY
     Route: 048
     Dates: start: 20091111
  3. ZEMPLAR [Suspect]
     Active Substance: PARICALCITOL
     Indication: HYPERPARATHYROIDISM SECONDARY
     Dosage: 3 AMPOULE PER WEEK
     Route: 042
     Dates: start: 20100409
  4. INSUMAN [Concomitant]
     Active Substance: INSULIN HUMAN
     Indication: PRODUCT USED FOR UNKNOWN INDICATION
     Dosage: DAILY
     Dates: start: 20020903
  5. FERRELECIT [Concomitant]
     Indication: PRODUCT USED FOR UNKNOWN INDICATION
     Route: 042
     Dates: start: 20091111
  6. INSUMAN RAPID [Concomitant]
     Active Substance: INSULIN HUMAN
     Indication: PRODUCT USED FOR UNKNOWN INDICATION
     Dosage: ON DEMAND
     Dates: start: 20020903
  7. OSTEOTRIOL [Concomitant]
     Indication: PRODUCT USED FOR UNKNOWN INDICATION
     Dosage: THREE TIMES PER WEEK
     Route: 048
     Dates: start: 20100409, end: 20100524
  8. METOPROLOL [Concomitant]
     Active Substance: METOPROLOL
     Indication: PRODUCT USED FOR UNKNOWN INDICATION
     Dosage: ONCE PER DAY
     Route: 048
     Dates: start: 20020903
  9. SIMVASTATIN. [Concomitant]
     Active Substance: SIMVASTATIN
     Indication: PRODUCT USED FOR UNKNOWN INDICATION
     Dosage: ONCE PER DAY
     Route: 048
     Dates: start: 20080407
  10. BLOPRESS [Concomitant]
     Active Substance: CANDESARTAN CILEXETIL
     Indication: PRODUCT USED FOR UNKNOWN INDICATION
     Dosage: TWO TIMES PER DAY
     Route: 048
     Dates: start: 20100324, end: 20100616
  11. EPOETIN ZETA [Concomitant]
     Active Substance: ERYTHROPOIETIN
     Indication: PRODUCT USED FOR UNKNOWN INDICATION
     Dosage: TWO PER WEEK
     Route: 042
     Dates: start: 20100303
  12. FUROSEMID [Concomitant]
     Active Substance: FUROSEMIDE
     Indication: PRODUCT USED FOR UNKNOWN INDICATION
     Dosage: 1.5 TIMES PER DAY
     Route: 048
     Dates: start: 20081212
  13. ANTIPHOSPHAT [Concomitant]
     Indication: PRODUCT USED FOR UNKNOWN INDICATION
     Dosage: THREE TIMES PER DAY
     Route: 048
     Dates: start: 20090713

REACTIONS (3)
  - Parathyroidectomy [Unknown]
  - Drug ineffective [Unknown]
  - Parathyroid reimplantation [Unknown]

NARRATIVE: CASE EVENT DATE: 20101027
